FAERS Safety Report 4402912-1 (Version None)
Quarter: 2004Q3

REPORT INFORMATION
  Report Type: 
  Country: None (occurrence: None)
  Receive Date: 20040720
  Receipt Date: 20040707
  Transmission Date: 20050211
  Serious: Yes (Hospitalization)
  Sender: FDA-Public Use
  Company Number: 2004CG01020

PATIENT
  Age: 82 Year
  Sex: Female

DRUGS (6)
  1. CRESTOR [Suspect]
     Dosage: 10 MG QD PO
     Route: 048
     Dates: start: 20040401, end: 20040601
  2. PLAVIX [Concomitant]
  3. DIGOXIN [Concomitant]
  4. APROVEL [Concomitant]
  5. NAFTIDROFLURYL [Concomitant]
  6. DHEA [Concomitant]

REACTIONS (2)
  - AGRANULOCYTOSIS [None]
  - FATIGUE [None]
